FAERS Safety Report 10462919 (Version 1)
Quarter: 2014Q3

REPORT INFORMATION
  Report Type: Spontaneous
  Country: US (occurrence: US)
  Receive Date: 20140918
  Receipt Date: 20140918
  Transmission Date: 20150326
  Serious: Yes (Other)
  Sender: FDA-Public Use
  Company Number: US-ASTRAZENECA-2014SE68947

PATIENT
  Age: 77 Year
  Sex: Female
  Weight: 76.7 kg

DRUGS (14)
  1. CRESTOR [Suspect]
     Active Substance: ROSUVASTATIN CALCIUM
     Indication: BLOOD CHOLESTEROL ABNORMAL
     Route: 048
     Dates: start: 2014
  2. CO ENZYME Q 10 [Concomitant]
     Indication: CARDIAC DISORDER
     Dosage: DAILY
     Route: 048
  3. CALCIUM [Concomitant]
     Active Substance: CALCIUM
     Dosage: 3200 DAILY
     Route: 048
  4. TOPROL XL [Suspect]
     Active Substance: METOPROLOL SUCCINATE
     Indication: ILL-DEFINED DISORDER
     Route: 048
     Dates: start: 1992
  5. CRESTOR [Suspect]
     Active Substance: ROSUVASTATIN CALCIUM
     Indication: BLOOD CHOLESTEROL ABNORMAL
     Route: 048
     Dates: end: 2014
  6. FISH OIL WITH OMEGA 3 [Concomitant]
     Indication: CARDIAC DISORDER
     Dosage: DAILY
     Route: 048
  7. VITAMIN C [Concomitant]
     Active Substance: ASCORBIC ACID
     Indication: NASOPHARYNGITIS
     Dosage: DAILY
     Route: 048
  8. SUPER B COMPLEX [Concomitant]
     Active Substance: CYANOCOBALAMIN\DEXPANTHENOL\NIACINAMIDE\PYRIDOXINE HYDROCHLORIDE\RIBOFLAVIN 5^-PHOSPHATE SODIUM\THIAMINE HYDROCHLORIDE\VITAMIN B COMPLEX
     Indication: ASTHENIA
     Dosage: DAILY
     Route: 048
  9. SIMVASTATIN. [Concomitant]
     Active Substance: SIMVASTATIN
     Dosage: FOR YEARS
  10. PROBIOTICS [Concomitant]
     Active Substance: PROBIOTICS NOS
     Indication: ILL-DEFINED DISORDER
     Dosage: DAILY
     Route: 048
  11. CRESTOR [Suspect]
     Active Substance: ROSUVASTATIN CALCIUM
     Indication: BLOOD CHOLESTEROL ABNORMAL
     Route: 048
     Dates: start: 2013
  12. LIPITOR [Concomitant]
     Active Substance: ATORVASTATIN CALCIUM
  13. GLUCOSAMINE [Concomitant]
     Active Substance: GLUCOSAMINE
     Indication: ARTHROPATHY
     Dosage: DAILY
     Route: 048
  14. IRON [Concomitant]
     Active Substance: IRON
     Indication: FULL BLOOD COUNT DECREASED
     Dosage: DAILY
     Route: 048

REACTIONS (7)
  - Haemoglobin decreased [Unknown]
  - Nasopharyngitis [Unknown]
  - Muscle spasms [Not Recovered/Not Resolved]
  - Full blood count decreased [Unknown]
  - Insomnia [Not Recovered/Not Resolved]
  - Asthma [Unknown]
  - Intentional product misuse [Recovered/Resolved]

NARRATIVE: CASE EVENT DATE: 1992
